FAERS Safety Report 10334255 (Version 5)
Quarter: 2014Q4

REPORT INFORMATION
  Report Type: Spontaneous
  Country: US (occurrence: US)
  Receive Date: 20140723
  Receipt Date: 20141027
  Transmission Date: 20150528
  Serious: Yes (Hospitalization, Other)
  Sender: FDA-Public Use
  Company Number: US-SA-2014SA095832

PATIENT
  Age: 65 Year
  Sex: Female

DRUGS (16)
  1. LANTUS SOLOSTAR [Suspect]
     Active Substance: INSULIN GLARGINE
     Indication: TYPE 2 DIABETES MELLITUS
     Dosage: DOSE: 22 TO 24 UNITS
     Route: 065
     Dates: start: 2007
  2. ASPIRIN ^BAYER^ [Concomitant]
     Active Substance: ASPIRIN
     Dates: start: 201407
  3. TACROLIMUS. [Concomitant]
     Active Substance: TACROLIMUS
     Indication: TRANSPLANT
     Dates: start: 20131215
  4. COMBIGAN [Concomitant]
     Active Substance: BRIMONIDINE TARTRATE\TIMOLOL MALEATE
     Dates: start: 20131215
  5. BACTRIM [Concomitant]
     Active Substance: SULFAMETHOXAZOLE\TRIMETHOPRIM
     Indication: TRANSPLANT
     Dosage: MONDAY/ WEDNESDAY/ FRIDAY
     Dates: start: 20131215
  6. OMEPRAZOLE. [Concomitant]
     Active Substance: OMEPRAZOLE
     Indication: TRANSPLANT
     Dates: start: 20131215
  7. ATORVASTATIN [Concomitant]
     Active Substance: ATORVASTATIN
     Dates: start: 20131215
  8. CALCIUM CARBONATE. [Concomitant]
     Active Substance: CALCIUM CARBONATE
  9. NOVOLOG [Concomitant]
     Active Substance: INSULIN ASPART
     Dosage: DOSE: 12 U/ 10 U/ 10 U
  10. MYFORTIC [Concomitant]
     Active Substance: MYCOPHENOLATE SODIUM
     Indication: TRANSPLANT
     Dates: start: 20131215
  11. TRAMADOL [Concomitant]
     Active Substance: TRAMADOL
  12. LUMIGAN [Concomitant]
     Active Substance: BIMATOPROST
     Dates: start: 20131215
  13. PREDNISONE. [Concomitant]
     Active Substance: PREDNISONE
     Indication: TRANSPLANT
     Dates: start: 20131215
  14. SOLOSTAR [Concomitant]
     Active Substance: DEVICE
     Dates: start: 2007
  15. GABAPENTIN. [Concomitant]
     Active Substance: GABAPENTIN
     Dates: start: 20131215
  16. ALPRAZOLAM. [Concomitant]
     Active Substance: ALPRAZOLAM

REACTIONS (3)
  - Renal transplant [Unknown]
  - Hospitalisation [Unknown]
  - Drug administration error [Unknown]

NARRATIVE: CASE EVENT DATE: 20131214
